FAERS Safety Report 6437534-4 (Version None)
Quarter: 2009Q4

REPORT INFORMATION
  Report Type: 
  Country: None (occurrence: None)
  Receive Date: 20091112
  Receipt Date: 20091030
  Transmission Date: 20100525
  Serious: Yes (Other)
  Sender: FDA-Public Use
  Company Number: JP-PFIZER INC-2009282983

PATIENT
  Age: 67 Year
  Sex: Male
  Weight: 56.9 kg

DRUGS (8)
  1. CHAMPIX [Suspect]
     Dosage: 0.5 MG, 1X/DAY
     Route: 048
     Dates: start: 20090828, end: 20090829
  2. CHAMPIX [Suspect]
     Dosage: 0.5 MG, 2X/DAY
     Dates: start: 20090831, end: 20090901
  3. ASPIRIN [Concomitant]
     Dosage: UNK
     Route: 048
  4. PLETAL [Concomitant]
     Dosage: UNK
     Route: 048
  5. SIMVASTATIN [Concomitant]
     Dosage: UNK
     Route: 048
  6. DOGMATYL [Concomitant]
     Dosage: UNK
     Route: 048
  7. DEPAS [Concomitant]
     Dosage: UNK
     Route: 048
  8. AMOBAN [Concomitant]
     Dosage: UNK
     Route: 048

REACTIONS (1)
  - RETINAL ARTERY OCCLUSION [None]
